FAERS Safety Report 4762150-X (Version None)
Quarter: 2005Q3

REPORT INFORMATION
  Report Type: 
  Country: None (occurrence: None)
  Receive Date: 20050906
  Receipt Date: 20050906
  Transmission Date: 20060218
  Serious: Yes (Other)
  Sender: FDA-Public Use
  Company Number: None

PATIENT
  Sex: Female
  Weight: 68.0396 kg

DRUGS (2)
  1. CRESTOR [Suspect]
     Indication: BLOOD CHOLESTEROL INCREASED
     Dosage: 20 MG ONCE PO
     Route: 048
     Dates: start: 20050101, end: 20050906
  2. GEMFIBROZIL [Suspect]
     Indication: BLOOD TRIGLYCERIDES INCREASED
     Dosage: 600 MG TWICE A DAY PO
     Route: 048
     Dates: start: 20050831, end: 20050906

REACTIONS (5)
  - ABDOMINAL PAIN LOWER [None]
  - BACK PAIN [None]
  - DIFFICULTY IN WALKING [None]
  - PAIN IN EXTREMITY [None]
  - RENAL PAIN [None]
